FAERS Safety Report 7359120-4 (Version None)
Quarter: 2011Q1

REPORT INFORMATION
  Report Type: 
  Country: None (occurrence: None)
  Receive Date: 20110317
  Receipt Date: 20110309
  Transmission Date: 20110831
  Serious: Yes (Hospitalization)
  Sender: FDA-Public Use
  Company Number: GB-MILLENNIUM PHARMACEUTICALS, INC.-2011-00357

PATIENT

DRUGS (12)
  1. PREDNISONE [Suspect]
     Indication: MANTLE CELL LYMPHOMA
     Dosage: 100 MG, UNK
     Route: 048
     Dates: start: 20100825
  2. MEROPENEM [Concomitant]
     Dosage: 1 G, UNK
     Route: 042
     Dates: start: 20110125, end: 20110128
  3. RAMIPRIL [Concomitant]
     Indication: HYPERTENSION
     Dosage: 2.25 MG, UNK
     Route: 048
     Dates: start: 20090701
  4. CYCLOPHOSPHAMIDE [Suspect]
     Indication: MANTLE CELL LYMPHOMA
     Dosage: 1500 MG, UNK
     Route: 042
     Dates: start: 20100825
  5. LEVOPROMAZIN [Concomitant]
     Dosage: 6.25 MG, UNK
     Route: 048
     Dates: start: 20101117, end: 20110223
  6. NASEPTIN [Concomitant]
     Dosage: UNK
     Route: 065
     Dates: start: 20110125, end: 20110127
  7. CLARITHROMYCIN [Concomitant]
     Dosage: 500 MG, UNK
     Route: 042
     Dates: start: 20110125, end: 20110128
  8. VELCADE [Suspect]
     Indication: MANTLE CELL LYMPHOMA
     Dosage: 3.2 MG, UNK
     Route: 042
     Dates: start: 20100825
  9. DOXORUBICIN HCL [Suspect]
     Indication: MANTLE CELL LYMPHOMA
     Dosage: 100 MG, UNK
     Route: 042
     Dates: start: 20100825
  10. NOVOMIX                            /01475801/ [Concomitant]
     Indication: DIABETES MELLITUS
     Dosage: 300 MG, UNK
     Route: 065
     Dates: start: 20110125, end: 20110126
  11. LORAZEPAM [Concomitant]
     Dosage: 1 MG, UNK
     Dates: start: 20101117, end: 20110223
  12. VINCRISTINE [Suspect]
     Indication: MANTLE CELL LYMPHOMA
     Dosage: 2 MG, UNK
     Route: 042
     Dates: start: 20100825

REACTIONS (2)
  - INFECTION [None]
  - PNEUMONIA [None]
